FAERS Safety Report 7073862-X (Version None)
Quarter: 2010Q4

REPORT INFORMATION
  Report Type: 
  Country: None (occurrence: None)
  Receive Date: 20101029
  Receipt Date: 20100826
  Transmission Date: 20110411
  Serious: No
  Sender: FDA-Public Use
  Company Number: A0877901A

PATIENT
  Age: 37 Year
  Sex: Female

DRUGS (2)
  1. ADVAIR DISKUS 100/50 [Suspect]
     Indication: ASTHMA
  2. NASACORT [Concomitant]

REACTIONS (1)
  - OEDEMA PERIPHERAL [None]
